FAERS Safety Report 17241423 (Version 1)
Quarter: 2020Q1

REPORT INFORMATION
  Report Type: Spontaneous
  Country: DE (occurrence: DE)
  Receive Date: 20200107
  Receipt Date: 20200107
  Transmission Date: 20200409
  Serious: Yes (Hospitalization)
  Sender: FDA-Public Use
  Company Number: DE-TEVA-2019-DE-1162360

PATIENT
  Age: 65 Year
  Sex: Female

DRUGS (4)
  1. BISOPROLOL [Concomitant]
     Active Substance: BISOPROLOL
     Dosage: 5 MG, 0.5-0-0-0, 2.5 MG PER DAY
     Route: 048
  2. AMLODIPIN [Suspect]
     Active Substance: AMLODIPINE BESYLATE
     Dosage: 5 MG, 1-0-0-0
     Route: 048
  3. CANDESARTAN HYDROCHLOROTHIAZIDE 8 MG/12,5 MG TABLETTEN [Suspect]
     Active Substance: CANDESARTAN CILEXETIL\HYDROCHLOROTHIAZIDE
     Dosage: 8|12.5 MG, 1-0-0-0, 1 DOSAGE FORMS
     Route: 048
  4. LEVOTHYROXIN-NATRIUM 50 MIKROGRAMM TABLETTEN [Concomitant]
     Dosage: 50 MICROGRAM, 1-0-0-0
     Route: 048

REACTIONS (3)
  - Hypotension [Recovered/Resolved]
  - Dizziness [Recovered/Resolved]
  - Presyncope [Recovered/Resolved]
